FAERS Safety Report 4574649-X (Version None)
Quarter: 2005Q1

REPORT INFORMATION
  Report Type: 
  Country: None (occurrence: None)
  Receive Date: 20050208
  Receipt Date: 20040625
  Transmission Date: 20050727
  Serious: No
  Sender: FDA-Public Use
  Company Number: US-GLAXOSMITHKLINE-A0516118A

PATIENT
  Age: 61 Year
  Sex: Female

DRUGS (3)
  1. PAXIL [Suspect]
     Dosage: 30MG PER DAY
     Route: 048
     Dates: start: 19940101
  2. XANAX [Concomitant]
  3. ZETIA [Concomitant]

REACTIONS (3)
  - HOT FLUSH [None]
  - HYPERHIDROSIS [None]
  - NAUSEA [None]
